FAERS Safety Report 6022694-X (Version None)
Quarter: 2008Q4

REPORT INFORMATION
  Report Type: 
  Country: None (occurrence: None)
  Receive Date: 20081230
  Receipt Date: 20081003
  Transmission Date: 20090506
  Serious: No
  Sender: FDA-Public Use
  Company Number: US-BRISTOL-MYERS SQUIBB COMPANY-14359087

PATIENT
  Sex: Female
  Weight: 41 kg

DRUGS (1)
  1. SPRYCEL [Suspect]
     Indication: ACUTE LYMPHOCYTIC LEUKAEMIA
     Dosage: STOPPED AND RESTARTED AT A DOSE OF 100 MG QD
     Dates: start: 20080101

REACTIONS (2)
  - COLITIS [None]
  - PLEURAL EFFUSION [None]
